FAERS Safety Report 17063736 (Version 1)
Quarter: 2019Q4

REPORT INFORMATION
  Report Type: Spontaneous
  Country: US (occurrence: US)
  Receive Date: 20191023
  Receipt Date: 20191023
  Transmission Date: 20200122
  Serious: No
  Sender: FDA-Public Use
  Company Number: None

PATIENT
  Age: 64 Year
  Sex: Female

DRUGS (1)
  1. FORTEO [Suspect]
     Active Substance: TERIPARATIDE
     Indication: OSTEOPOROSIS
     Route: 058
     Dates: start: 20190801

REACTIONS (4)
  - Arthralgia [None]
  - Fatigue [None]
  - Hypertension [None]
  - Muscle spasms [None]

NARRATIVE: CASE EVENT DATE: 20191010
